FAERS Safety Report 9798771 (Version 1)
Quarter: 2014Q1

REPORT INFORMATION
  Report Type: Spontaneous
  Country: ES (occurrence: ES)
  Receive Date: 20140106
  Receipt Date: 20140106
  Transmission Date: 20141002
  Serious: Yes (Life-Threatening, Hospitalization)
  Sender: FDA-Public Use
  Company Number: ES-JNJFOC-20140100882

PATIENT
  Age: 69 Year
  Sex: Female

DRUGS (7)
  1. REMICADE [Suspect]
     Indication: PSORIATIC ARTHROPATHY
     Route: 042
     Dates: start: 20130314, end: 20130314
  2. SALAZOPYRIN [Suspect]
     Indication: PSORIATIC ARTHROPATHY
     Route: 048
     Dates: start: 20130316, end: 20130316
  3. ACITRETIN [Concomitant]
     Route: 065
     Dates: start: 2012
  4. TORSEMIDE [Concomitant]
     Route: 065
     Dates: start: 2011
  5. LORAZEPAM [Concomitant]
     Route: 065
     Dates: start: 2008
  6. OMEPRAZOLE [Concomitant]
     Route: 065
     Dates: start: 2009
  7. TRAMADOL HYDROCHLORIDE [Concomitant]
     Route: 065
     Dates: start: 2011

REACTIONS (4)
  - Acute generalised exanthematous pustulosis [Recovering/Resolving]
  - Pancreatitis acute [Recovering/Resolving]
  - Renal failure acute [Recovering/Resolving]
  - Pustular psoriasis [Recovering/Resolving]
